FAERS Safety Report 6591204-0 (Version None)
Quarter: 2010Q1

REPORT INFORMATION
  Report Type: 
  Country: None (occurrence: None)
  Receive Date: 20100219
  Receipt Date: 20100208
  Transmission Date: 20100710
  Serious: Yes (Other)
  Sender: FDA-Public Use
  Company Number: PHHY2010JP07917

PATIENT
  Sex: Female

DRUGS (1)
  1. VOLTAREN [Suspect]
     Route: 054

REACTIONS (3)
  - CONFUSIONAL STATE [None]
  - HYPONATRAEMIA [None]
  - POLLAKIURIA [None]
